FAERS Safety Report 9519239 (Version 2)
Quarter: 2013Q4

REPORT INFORMATION
  Report Type: Spontaneous
  Country: FR (occurrence: FR)
  Receive Date: 20130912
  Receipt Date: 20131011
  Transmission Date: 20140711
  Serious: No
  Sender: FDA-Public Use
  Company Number: FR-009507513-1309FRA002054

PATIENT
  Sex: Female
  Weight: 90 kg

DRUGS (2)
  1. NEXPLANON [Suspect]
     Indication: CONTRACEPTION
     Dosage: UNK
     Route: 059
     Dates: end: 20130621
  2. NEXPLANON [Suspect]
     Dosage: UNK
     Route: 059
     Dates: start: 20130621

REACTIONS (2)
  - Unintended pregnancy [Unknown]
  - Chlamydial infection [Unknown]
